FAERS Safety Report 8604473-X (Version None)
Quarter: 2012Q3

REPORT INFORMATION
  Report Type: 
  Country: None (occurrence: None)
  Receive Date: 20120820
  Receipt Date: 20120809
  Transmission Date: 20120928
  Serious: Yes (Other)
  Sender: FDA-Public Use
  Company Number: FR-JNJFOC-20120807037

PATIENT

DRUGS (4)
  1. RITONAVIR [Suspect]
     Indication: PATHOGEN RESISTANCE
     Route: 065
  2. DARUNAVIR ETHANOLATE [Suspect]
     Indication: PATHOGEN RESISTANCE
     Route: 065
  3. ETRAVIRINE [Suspect]
     Indication: PATHOGEN RESISTANCE
     Route: 065
  4. RALTEGRAVIR [Suspect]
     Indication: PATHOGEN RESISTANCE
     Route: 065

REACTIONS (1)
  - NEPHROLITHIASIS [None]
